FAERS Safety Report 9518080 (Version 1)
Quarter: 2013Q1

REPORT INFORMATION
  Report Type: Spontaneous
  Country: US (occurrence: None)
  Receive Date: 20130305
  Receipt Date: 20130305
  Transmission Date: 20140127
  Serious: Yes (Other)
  Sender: FDA-Public Use
  Company Number: 163-21880-12082533

PATIENT
  Age: 77 Year
  Sex: Male
  Weight: 74.39 kg

DRUGS (15)
  1. REVLIMID [Suspect]
     Indication: PLASMA CELL MYELOMA
     Dosage: 10 MG, 14 IN 21 D, PO
     Route: 048
     Dates: start: 20100922
  2. ACIDOPHILUS (LACTOBACILLUS ACIDOPHILUS) (UNKNOWN) [Concomitant]
  3. BIOTENE (GLUCOSE OXIDASE) (UNKNOWN) [Concomitant]
  4. CENTRUM SILVER (CENTRUM SILVER) (UNKNOWN) [Concomitant]
  5. COUMADIN (WARFARIN SODIUM) (UNKNOWN) [Concomitant]
  6. DEXAMETHASONE (DEXAMETHASONE) (UNKNOWN) [Concomitant]
  7. FOLBEE (TRIOBE) (UNKNOWN) [Concomitant]
  8. KLOR-CON (POTASSIUM CHLORIDE) (UNKNOWN) [Concomitant]
  9. LASIX (FUROSEMIDE) (UNKNOWN) [Concomitant]
  10. METOPROLOL (METOPROLOL) (UNNOWN) [Concomitant]
  11. NEXIUM (ESOMEPRAZOLE) (UNKNOWN) [Concomitant]
  12. OXYCODONE (OXYCODONE) (UNKNOWN) (OXYCODONE) [Concomitant]
  13. PROBIOTIC (BIFIDOBACTERIUM LACTIS) (UNKNOWN) [Concomitant]
  14. VITAMINA A (RETINOL) (UNKNOWN) [Concomitant]
  15. SILVADENE (SULFADIAZINE SILVER) (CREAM) [Concomitant]

REACTIONS (4)
  - Thrombocytopenia [None]
  - Pyrexia [None]
  - Dizziness [None]
  - Visual impairment [None]
